FAERS Safety Report 15335150 (Version 1)
Quarter: 2018Q3

REPORT INFORMATION
  Report Type: Report from Study
  Country: US (occurrence: US)
  Receive Date: 20180830
  Receipt Date: 20180830
  Transmission Date: 20181010
  Serious: Yes (Hospitalization)
  Sender: FDA-Public Use
  Company Number: US-PUMA BIOTECHNOLOGY, LTD.-2018US008450

PATIENT

DRUGS (1)
  1. NERLYNX [Suspect]
     Active Substance: NERATINIB
     Indication: BREAST CANCER FEMALE
     Dosage: 240 MG, 6 TABLETS, DAILY
     Route: 048
     Dates: start: 20180813, end: 20180817

REACTIONS (3)
  - Malaise [Unknown]
  - Dysstasia [Unknown]
  - Dehydration [Unknown]

NARRATIVE: CASE EVENT DATE: 201808
